FAERS Safety Report 5860927-0 (Version None)
Quarter: 2008Q3

REPORT INFORMATION
  Report Type: 
  Country: None (occurrence: None)
  Receive Date: 20080827
  Receipt Date: 20071221
  Transmission Date: 20090109
  Serious: No
  Sender: FDA-Public Use
  Company Number: US-ABBOTT-08P-163-0433132-00

PATIENT
  Sex: Male
  Weight: 71.732 kg

DRUGS (10)
  1. COATED PDS [Suspect]
     Indication: BLOOD CHOLESTEROL INCREASED
     Route: 048
     Dates: start: 20071001
  2. COATED PDS [Suspect]
     Route: 048
  3. INEGY [Concomitant]
     Indication: BLOOD CHOLESTEROL INCREASED
     Route: 048
  4. CARVEDILOL [Concomitant]
     Indication: DRUG USE FOR UNKNOWN INDICATION
     Route: 048
  5. LOTREL [Concomitant]
     Indication: HYPERTENSION
     Route: 048
  6. CLOPIDOGREL [Concomitant]
     Indication: ANTICOAGULANT THERAPY
     Route: 048
  7. OXYBUTYNIN [Concomitant]
     Indication: INCONTINENCE
     Route: 048
  8. WARFARIN SODIUM [Concomitant]
     Indication: ANTICOAGULANT THERAPY
     Route: 048
  9. ACETYLSALICYLIC ACID SRT [Concomitant]
     Indication: PREMEDICATION
     Route: 048
     Dates: start: 20071001, end: 20071220
  10. ACETYLSALICYLIC ACID SRT [Concomitant]
     Route: 048
     Dates: start: 20071221

REACTIONS (2)
  - BLOOD GLUCOSE INCREASED [None]
  - SKIN BURNING SENSATION [None]
